FAERS Safety Report 15869096 (Version 1)
Quarter: 2019Q1

REPORT INFORMATION
  Report Type: Spontaneous
  Country: FR (occurrence: FR)
  Receive Date: 20190125
  Receipt Date: 20190125
  Transmission Date: 20190417
  Serious: Yes (Hospitalization)
  Sender: FDA-Public Use
  Company Number: FR-TEVA-2019-FR-1003556

PATIENT
  Age: 25 Year
  Sex: Female

DRUGS (2)
  1. SERESTA [Suspect]
     Active Substance: OXAZEPAM
     Dosage: 300 MILLIGRAM DAILY;
     Route: 048
     Dates: start: 201802
  2. CHLORHYDRATE DE TRAMADOL [Suspect]
     Active Substance: TRAMADOL HYDROCHLORIDE
     Dosage: 250 MILLIGRAM DAILY;
     Route: 048
     Dates: start: 201710

REACTIONS (1)
  - Drug dependence [Not Recovered/Not Resolved]

NARRATIVE: CASE EVENT DATE: 201802
